FAERS Safety Report 15755592 (Version 4)
Quarter: 2019Q2

REPORT INFORMATION
  Report Type: Report from Study
  Country: US (occurrence: US)
  Receive Date: 20181224
  Receipt Date: 20190619
  Transmission Date: 20190711
  Serious: Yes (Other)
  Sender: FDA-Public Use
  Company Number: PHEH2018US053424

PATIENT
  Sex: Female

DRUGS (3)
  1. GILENYA [Suspect]
     Active Substance: FINGOLIMOD HYDROCHLORIDE
     Dosage: 0.5 MG, QD
     Route: 048
  2. GILENYA [Suspect]
     Active Substance: FINGOLIMOD HYDROCHLORIDE
     Indication: MULTIPLE SCLEROSIS
     Dosage: 0.5 MG, QD
     Route: 048
  3. TOPAMAX [Suspect]
     Active Substance: TOPIRAMATE
     Indication: MIGRAINE
     Dosage: UNK
     Route: 065

REACTIONS (16)
  - Thinking abnormal [Unknown]
  - Suicidal ideation [Unknown]
  - Alopecia [Unknown]
  - Meniere^s disease [Unknown]
  - Dizziness [Unknown]
  - Central nervous system lesion [Unknown]
  - Visual impairment [Unknown]
  - Multiple sclerosis [Unknown]
  - Amnesia [Unknown]
  - Cognitive disorder [Unknown]
  - Vision blurred [Recovering/Resolving]
  - Vertigo [Unknown]
  - Progressive multiple sclerosis [Unknown]
  - Migraine [Unknown]
  - Muscle spasticity [Unknown]
  - Musculoskeletal stiffness [Unknown]
